FAERS Safety Report 14506769 (Version 1)
Quarter: 2018Q1

REPORT INFORMATION
  Report Type: Spontaneous
  Country: US (occurrence: US)
  Receive Date: 20180208
  Receipt Date: 20180208
  Transmission Date: 20180509
  Serious: Yes (Other)
  Sender: FDA-Public Use
  Company Number: US-TEVA-2018-US-855488

PATIENT
  Age: 75 Year
  Sex: Male

DRUGS (2)
  1. TRAZODONE HYDROCHLORIDE. [Suspect]
     Active Substance: TRAZODONE HYDROCHLORIDE
     Indication: ANXIETY
     Dosage: FOR 30 YEARS
  2. TRAZODONE HYDROCHLORIDE. [Suspect]
     Active Substance: TRAZODONE HYDROCHLORIDE
     Indication: SLEEP DISORDER

REACTIONS (16)
  - Shoulder arthroplasty [Unknown]
  - Adverse event [Unknown]
  - Dyspnoea [Unknown]
  - Wrong technique in product usage process [Unknown]
  - Palpitations [Unknown]
  - Spinal fusion surgery [Unknown]
  - Fatigue [Unknown]
  - Knee arthroplasty [Unknown]
  - Hypotension [Unknown]
  - Anxiety [Unknown]
  - Hip arthroplasty [Unknown]
  - Sleep disorder [Unknown]
  - Syncope [Unknown]
  - Feeling abnormal [Unknown]
  - Compartment syndrome [Unknown]
  - Heart rate decreased [Unknown]

NARRATIVE: CASE EVENT DATE: 201703
